FAERS Safety Report 9937652 (Version 1)
Quarter: 2014Q1

REPORT INFORMATION
  Report Type: Spontaneous
  Country: US (occurrence: US)
  Receive Date: 20140303
  Receipt Date: 20140303
  Transmission Date: 20141002
  Serious: Yes (Other)
  Sender: FDA-Public Use
  Company Number: US-AMGEN-USASP2014014237

PATIENT
  Age: 59 Year
  Sex: Female

DRUGS (9)
  1. NEULASTA [Suspect]
     Indication: WHITE BLOOD CELL COUNT DECREASED
     Dosage: UNK
     Route: 065
  2. GEMZAR [Concomitant]
     Indication: MYCOSIS FUNGOIDES
     Dosage: UNK
  3. SYNTHROID [Concomitant]
     Dosage: UNK
  4. ALVESCO [Concomitant]
     Dosage: UNK
  5. ATARAX                             /00058401/ [Concomitant]
     Dosage: UNK
  6. BONIVA [Concomitant]
     Dosage: UNK
  7. SINGULAIR [Concomitant]
     Dosage: UNK
  8. VALTREX [Concomitant]
     Dosage: UNK
  9. XANAX [Concomitant]
     Dosage: UNK

REACTIONS (3)
  - Abscess [Recovered/Resolved]
  - White blood cell count abnormal [Unknown]
  - Blood alkaline phosphatase increased [Unknown]
